FAERS Safety Report 9360513 (Version 1)
Quarter: 2013Q2

REPORT INFORMATION
  Report Type: Spontaneous
  Country: US (occurrence: None)
  Receive Date: 20130620
  Receipt Date: 20130620
  Transmission Date: 20140414
  Serious: No
  Sender: FDA-Public Use
  Company Number: None

PATIENT
  Age: 70 Year
  Sex: Female

DRUGS (7)
  1. LOVENOX [Suspect]
     Indication: THROMBOSIS PROPHYLAXIS
     Dates: start: 20130616, end: 20130618
  2. CHLORTHALIDONE [Concomitant]
  3. SOTALOL [Concomitant]
  4. CLOBETASOL CREAM [Concomitant]
  5. LISINOPRIL [Concomitant]
  6. LIPITOR [Concomitant]
  7. FOLIC ACID [Concomitant]

REACTIONS (5)
  - Urticaria [None]
  - Injection site swelling [None]
  - Injection site warmth [None]
  - Injection site erythema [None]
  - Injection site urticaria [None]
